FAERS Safety Report 20393705 (Version 4)
Quarter: 2022Q3

REPORT INFORMATION
  Report Type: Spontaneous
  Country: DE (occurrence: DE)
  Receive Date: 20220128
  Receipt Date: 20220708
  Transmission Date: 20221026
  Serious: Yes (Hospitalization, Other)
  Sender: FDA-Public Use
  Company Number: DE-SA-SAC20220127000366

PATIENT
  Age: 80 Year
  Sex: Male

DRUGS (1)
  1. LIBTAYO [Suspect]
     Active Substance: CEMIPLIMAB-RWLC
     Indication: Neoplasm malignant
     Dosage: 350 MG
     Route: 042
     Dates: start: 20210330, end: 20210330

REACTIONS (19)
  - Cardiomyopathy [Recovered/Resolved]
  - Cytokine storm [Recovered/Resolved]
  - Delirium [Recovered/Resolved]
  - Interleukin level increased [Recovered/Resolved]
  - Leukocytosis [Recovered/Resolved]
  - Acute phase reaction [Recovered/Resolved]
  - C-reactive protein increased [Recovered/Resolved]
  - Atrial fibrillation [Unknown]
  - Squamous cell carcinoma of head and neck [Unknown]
  - Cytokine release syndrome [Unknown]
  - Chills [Unknown]
  - Body temperature increased [Unknown]
  - Hypertension [Unknown]
  - Malaise [Unknown]
  - Troponin increased [Unknown]
  - Pyrexia [Recovered/Resolved]
  - Cardiac pacemaker insertion [Unknown]
  - Discomfort [Unknown]
  - Skin lesion [Unknown]

NARRATIVE: CASE EVENT DATE: 20210330
